FAERS Safety Report 23466617 (Version 1)
Quarter: 2024Q1

REPORT INFORMATION
  Report Type: Spontaneous
  Country: GB (occurrence: GB)
  Receive Date: 20240201
  Receipt Date: 20240201
  Transmission Date: 20240409
  Serious: Yes (Other)
  Sender: FDA-Public Use
  Company Number: None

PATIENT
  Age: 63 Year
  Sex: Male
  Weight: 110 kg

DRUGS (19)
  1. EZETIMIBE [Suspect]
     Active Substance: EZETIMIBE
     Route: 048
     Dates: start: 20220722
  2. ALLOPURINOL [Concomitant]
     Active Substance: ALLOPURINOL
     Dosage: START THIS WHEN THE RECENT FLARE OF
     Dates: start: 20231207
  3. INSULIN HUMAN [Concomitant]
     Active Substance: INSULIN HUMAN
     Dosage: ACCORDING TO REQUIR
     Route: 058
     Dates: start: 20210106
  4. CHOLECALCIFEROL [Concomitant]
     Active Substance: CHOLECALCIFEROL
     Dates: start: 20130130
  5. TRULICITY [Concomitant]
     Active Substance: DULAGLUTIDE
     Dosage: (0.5 ML)
     Route: 058
     Dates: start: 20230626
  6. TRAMADOL [Concomitant]
     Active Substance: TRAMADOL\TRAMADOL HYDROCHLORIDE
     Dosage: ONE OR TWO TO BE TAKEN EVERY FOUR HOURS WHEN NE
     Dates: start: 20220826
  7. ACETAMINOPHEN [Concomitant]
     Active Substance: ACETAMINOPHEN
     Dosage: TIME INTERVAL: AS NECESSARY: FOUR TIMES A DAY
     Dates: start: 20110616
  8. UNSPECIFIED INGREDIENT [Concomitant]
     Active Substance: UNSPECIFIED INGREDIENT
     Dosage: AS DIRECTED
     Dates: start: 20160718
  9. UNSPECIFIED INGREDIENT [Concomitant]
     Active Substance: UNSPECIFIED INGREDIENT
     Dosage: USE AS DIRECTED
     Dates: start: 20221229
  10. UNSPECIFIED INGREDIENT [Concomitant]
     Active Substance: UNSPECIFIED INGREDIENT
     Dosage: AS DIRECTED
     Dates: start: 20190910
  11. UNSPECIFIED INGREDIENT [Concomitant]
     Active Substance: UNSPECIFIED INGREDIENT
     Dosage: USE AS DIRECTED - FOR USE WITH GLUCORX Q METER
     Dates: start: 20210304
  12. BEMPEDOIC ACID [Suspect]
     Active Substance: BEMPEDOIC ACID
     Route: 048
     Dates: start: 20220722
  13. RAMIPRIL [Concomitant]
     Active Substance: RAMIPRIL
     Dates: start: 20160718
  14. POLYETHYLENE GLYCOL 3350\POTASSIUM CHLORIDE\SODIUM BICARBONATE\SODIUM [Concomitant]
     Active Substance: POLYETHYLENE GLYCOL 3350\POTASSIUM CHLORIDE\SODIUM BICARBONATE\SODIUM CHLORIDE
     Dosage: USE AS DIRECTED
     Dates: start: 20141208
  15. COLCHICINE [Concomitant]
     Active Substance: COLCHICINE
     Dosage: TIME INTERVAL: 0.33333333 DAYS
     Dates: start: 20231207
  16. POTASSIUM BICARBONATE\SODIUM ALGINATE [Concomitant]
     Active Substance: POTASSIUM BICARBONATE\SODIUM ALGINATE
     Dosage: 5ML - 10ML 4 TIMES/DAY
     Dates: start: 20231123
  17. DOXAZOSIN [Concomitant]
     Active Substance: DOXAZOSIN MESYLATE
     Dosage: DURATION: 763 DAYS
     Dates: start: 20211130, end: 20240102
  18. AMITRIPTYLINE HYDROCHLORIDE [Concomitant]
     Active Substance: AMITRIPTYLINE HYDROCHLORIDE
     Dosage: NIGHT
     Dates: start: 20170911
  19. LANSOPRAZOLE [Concomitant]
     Active Substance: LANSOPRAZOLE
     Dosage: AS ADVISED BY SPEEC
     Dates: start: 20231006

REACTIONS (1)
  - Gout [Recovering/Resolving]
